FAERS Safety Report 7968217-7 (Version None)
Quarter: 2011Q4

REPORT INFORMATION
  Report Type: 
  Country: None (occurrence: None)
  Receive Date: 20111121
  Receipt Date: 20110817
  Transmission Date: 20120403
  Serious: No
  Sender: FDA-Public Use
  Company Number: 1000022951

PATIENT
  Age: 68 Year
  Sex: Female

DRUGS (5)
  1. AROMASIN (EXEMESTANE) (EXEMESTANE) [Concomitant]
  2. VIIBRYD [Suspect]
     Indication: DEPRESSION
     Dosage: 10 MG (10 MG, 1 IN 1 D), ORAL
     Route: 048
     Dates: end: 20110721
  3. PRILOSEC (OMEPRAZOLE) (OMEPRAZOLE) [Concomitant]
  4. LUNESTA (ESZOPICLONE) (ESZOPICLONE) [Concomitant]
  5. LIPITOR [Concomitant]

REACTIONS (3)
  - DEPRESSION [None]
  - DYSPEPSIA [None]
  - GAIT DISTURBANCE [None]
